FAERS Safety Report 8009207-8 (Version None)
Quarter: 2011Q4

REPORT INFORMATION
  Report Type: 
  Country: None (occurrence: None)
  Receive Date: 20111227
  Receipt Date: 20111215
  Transmission Date: 20120403
  Serious: Yes (Death)
  Sender: FDA-Public Use
  Company Number: US-MYLANLABS-2007S1007290

PATIENT
  Age: 54 Year
  Sex: Male
  Weight: 67 kg

DRUGS (9)
  1. GABAPENTIN [Concomitant]
  2. OXYCODONE HCL AND ACETAMINOPHEN [Concomitant]
  3. OXYCODONE HCL [Concomitant]
  4. ALPRAZOLAM [Concomitant]
  5. CATAPRES [Concomitant]
     Route: 062
  6. IBUPROFEN [Concomitant]
  7. LIPITOR [Concomitant]
  8. FENTANYL-100 [Suspect]
     Indication: PAIN
     Route: 062
     Dates: start: 20050729, end: 20050803
  9. FENTANYL-100 [Suspect]
     Indication: BACK PAIN
     Route: 062
     Dates: start: 20050729, end: 20050803

REACTIONS (1)
  - TOXICITY TO VARIOUS AGENTS [None]
